FAERS Safety Report 13373096 (Version 1)
Quarter: 2017Q1

REPORT INFORMATION
  Report Type: Spontaneous
  Country: BR (occurrence: BR)
  Receive Date: 20170327
  Receipt Date: 20170327
  Transmission Date: 20170429
  Serious: Yes (Other)
  Sender: FDA-Public Use
  Company Number: BR-JNJFOC-20170326412

PATIENT
  Age: 50 Year
  Sex: Male

DRUGS (8)
  1. XARELTO [Suspect]
     Active Substance: RIVAROXABAN
     Indication: PULMONARY EMBOLISM
     Route: 048
     Dates: start: 20170318
  2. XARELTO [Suspect]
     Active Substance: RIVAROXABAN
     Indication: HIP FRACTURE
     Route: 048
     Dates: start: 20170318
  3. CIPROFLOXACIN. [Concomitant]
     Active Substance: CIPROFLOXACIN
     Indication: HIP FRACTURE
     Route: 048
     Dates: start: 20170318
  4. XARELTO [Suspect]
     Active Substance: RIVAROXABAN
     Indication: PULMONARY EMBOLISM
     Route: 048
     Dates: start: 20170220, end: 20170312
  5. CIPROFLOXACIN. [Concomitant]
     Active Substance: CIPROFLOXACIN
     Indication: ANKLE FRACTURE
     Route: 048
     Dates: start: 20170318
  6. XARELTO [Suspect]
     Active Substance: RIVAROXABAN
     Indication: ANKLE FRACTURE
     Route: 048
     Dates: start: 20170220, end: 20170312
  7. XARELTO [Suspect]
     Active Substance: RIVAROXABAN
     Indication: ANKLE FRACTURE
     Route: 048
     Dates: start: 20170318
  8. XARELTO [Suspect]
     Active Substance: RIVAROXABAN
     Indication: HIP FRACTURE
     Route: 048
     Dates: start: 20170220, end: 20170312

REACTIONS (3)
  - Pulmonary embolism [Not Recovered/Not Resolved]
  - Blood urine present [Recovered/Resolved]
  - Blood urine present [Unknown]

NARRATIVE: CASE EVENT DATE: 20170315
